FAERS Safety Report 7576113-2 (Version None)
Quarter: 2011Q2

REPORT INFORMATION
  Report Type: 
  Country: None (occurrence: None)
  Receive Date: 20110623
  Receipt Date: 20110623
  Transmission Date: 20111010
  Serious: Yes (Other)
  Sender: FDA-Public Use
  Company Number: None

PATIENT
  Sex: Female
  Weight: 60.3284 kg

DRUGS (2)
  1. PREMARIN H-C VAGINAL CREAM [Suspect]
     Indication: BLADDER PROLAPSE
     Dosage: TWICE A WEEK
     Dates: start: 20110206
  2. PREMARIN H-C VAGINAL CREAM [Suspect]
     Indication: BLOOD OESTROGEN
     Dosage: TWICE A WEEK
     Dates: start: 20110206

REACTIONS (1)
  - VAGINAL HAEMORRHAGE [None]
